FAERS Safety Report 18123605 (Version 1)
Quarter: 2020Q3

REPORT INFORMATION
  Report Type: Spontaneous
  Country: US (occurrence: US)
  Receive Date: 20200806
  Receipt Date: 20200806
  Transmission Date: 20201103
  Serious: Yes (Death)
  Sender: FDA-Public Use
  Company Number: None

PATIENT
  Sex: Female

DRUGS (1)
  1. KEYTRUDA [Suspect]
     Active Substance: PEMBROLIZUMAB
     Indication: CERVIX CARCINOMA
     Dosage: ?          OTHER FREQUENCY:EVERY21DAYS ;?
     Route: 042
     Dates: start: 20200501

REACTIONS (2)
  - Toxicity to various agents [None]
  - Respiratory failure [None]
